FAERS Safety Report 6586347-1 (Version None)
Quarter: 2010Q1

REPORT INFORMATION
  Report Type: 
  Country: None (occurrence: None)
  Receive Date: 20100216
  Receipt Date: 20100216
  Transmission Date: 20100710
  Serious: Yes (Hospitalization)
  Sender: FDA-Public Use
  Company Number: None

PATIENT
  Age: 50 Year
  Sex: Female
  Weight: 75 kg

DRUGS (1)
  1. SAVELLA [Suspect]
     Indication: FIBROMYALGIA
     Dosage: 50MG ONCE IN MORNING PO, 100 MG ONCE IN EVENING PO
     Route: 048
     Dates: start: 20090804, end: 20100212

REACTIONS (7)
  - AGITATION [None]
  - CONVULSION [None]
  - HYPERTENSION [None]
  - INSOMNIA [None]
  - IRRITABILITY [None]
  - TACHYCARDIA [None]
  - VERTIGO [None]
